FAERS Safety Report 6309146-4 (Version None)
Quarter: 2009Q3

REPORT INFORMATION
  Report Type: 
  Country: None (occurrence: None)
  Receive Date: 20090814
  Receipt Date: 20090501
  Transmission Date: 20100115
  Serious: No
  Sender: FDA-Public Use
  Company Number: A0781645A

PATIENT
  Age: 50 Year
  Sex: Male

DRUGS (2)
  1. COREG CR [Suspect]
     Indication: ATRIAL FIBRILLATION
     Dosage: 40MG TWICE PER DAY
     Route: 048
     Dates: start: 20080901
  2. COUMADIN [Concomitant]

REACTIONS (2)
  - CHEST DISCOMFORT [None]
  - OVERDOSE [None]
